FAERS Safety Report 7068766-2 (Version None)
Quarter: 2010Q4

REPORT INFORMATION
  Report Type: 
  Country: None (occurrence: None)
  Receive Date: 20101028
  Receipt Date: 20101021
  Transmission Date: 20110411
  Serious: Yes (Other)
  Sender: FDA-Public Use
  Company Number: US-PFIZER INC-2010135447

PATIENT
  Sex: Female

DRUGS (1)
  1. DEPO-PROVERA [Suspect]
     Dosage: UNK
     Dates: start: 20070101

REACTIONS (2)
  - BLINDNESS [None]
  - NERVOUS SYSTEM DISORDER [None]
